FAERS Safety Report 6986703-3 (Version None)
Quarter: 2010Q3

REPORT INFORMATION
  Report Type: 
  Country: None (occurrence: None)
  Receive Date: 20100915
  Receipt Date: 20090727
  Transmission Date: 20110219
  Serious: No
  Sender: FDA-Public Use
  Company Number: US-WYE-H10340809

PATIENT
  Sex: Female
  Weight: 78.09 kg

DRUGS (6)
  1. PRISTIQ [Suspect]
     Indication: DEPRESSION
     Route: 048
     Dates: start: 20090601
  2. MOBIC [Concomitant]
  3. XANAX [Concomitant]
  4. CENESTIN [Concomitant]
  5. METFORMIN [Concomitant]
  6. SYNTHROID [Concomitant]

REACTIONS (3)
  - DECREASED ACTIVITY [None]
  - INCREASED APPETITE [None]
  - WEIGHT INCREASED [None]
